FAERS Safety Report 12523147 (Version 1)
Quarter: 2016Q3

REPORT INFORMATION
  Report Type: Report from Study
  Country: US (occurrence: US)
  Receive Date: 20160701
  Receipt Date: 20160701
  Transmission Date: 20161109
  Serious: Yes (Hospitalization)
  Sender: FDA-Public Use
  Company Number: US-ASTRAZENECA-2016SE69600

PATIENT
  Age: 58 Year
  Sex: Female
  Weight: 66 kg

DRUGS (13)
  1. ZOFRAN [Concomitant]
     Active Substance: ONDANSETRON HYDROCHLORIDE
     Dosage: TAKE 1 TABLET BY MOUTH EVERY 8 HOURS FOR 3 DAYS FOLLOWING CHEMOTHERAPY, THEN MAY TAKE 1 TABLET BY...
     Route: 048
     Dates: start: 20160418
  2. SENOKOT-S [Concomitant]
     Active Substance: DOCUSATE SODIUM\SENNOSIDES
     Dosage: TAKE 1 TABLET BY MOUTH TWICE DAILY.
     Route: 048
     Dates: start: 20160418, end: 20160501
  3. REGLAN [Concomitant]
     Active Substance: METOCLOPRAMIDE HYDROCHLORIDE
     Dosage: TAKE 1 TABLET (10 MG TOTAL) BY MOUTH 4 (FOUR) TIMES A DAY BEFORE MEALS AND NIGHTLY
     Route: 048
     Dates: start: 20160418
  4. COMPAZINE [Concomitant]
     Active Substance: PROCHLORPERAZINE MALEATE
     Dosage: TAKE 1 TABLET (10 MG TOTAL) BY MOUTH EVERY 6 (SIX) HOURS AS NEEDED
     Route: 048
     Dates: start: 20160418, end: 20160501
  5. AZD2281 [Suspect]
     Active Substance: OLAPARIB
     Indication: ENDOMETRIAL CANCER STAGE IV
     Route: 048
     Dates: start: 20160212, end: 20160319
  6. AZD2014 [Suspect]
     Active Substance: INVESTIGATIONAL PRODUCT
     Indication: ENDOMETRIAL CANCER STAGE IV
     Route: 048
     Dates: start: 20160311, end: 20160407
  7. MAGNESIUM OXIDE. [Concomitant]
     Active Substance: MAGNESIUM OXIDE
     Dosage: TAKE 400 MG BY MOUTH TWICE DAILY
     Route: 048
     Dates: end: 20160506
  8. TYLENOL PM [Concomitant]
     Active Substance: ACETAMINOPHEN\DIPHENHYDRAMINE
     Dosage: TAKE 1 TABLET BY MOUTH AT BEDTIME
     Route: 048
     Dates: end: 20160501
  9. LOVENOX [Concomitant]
     Active Substance: ENOXAPARIN SODIUM
     Dosage: INJECT 0.8 ML (80 MG TOTAL) UNDER THE SKIN DALLY
     Route: 058
     Dates: start: 20160418, end: 20160506
  10. ZOFRAN ODT [Concomitant]
     Active Substance: ONDANSETRON HYDROCHLORIDE
     Dosage: DISSOLVE 1 TABLET (8 MG TOTAL) ON THE TONGUE EVERY 8 (EIGHT) HOURS AS NEEDED
     Route: 048
     Dates: start: 20160418
  11. MIRALAX [Concomitant]
     Active Substance: POLYETHYLENE GLYCOL 3350
     Dosage: TAKE 17 G BY MOUTH DAILY
     Route: 048
     Dates: start: 20160418
  12. AZD2281 [Suspect]
     Active Substance: OLAPARIB
     Indication: ENDOMETRIAL CANCER STAGE IV
     Route: 048
     Dates: start: 20160311, end: 20160407
  13. AZD2014 [Suspect]
     Active Substance: INVESTIGATIONAL PRODUCT
     Indication: ENDOMETRIAL CANCER STAGE IV
     Route: 048
     Dates: start: 20160212, end: 20160319

REACTIONS (1)
  - Sepsis [Unknown]
